FAERS Safety Report 8974283 (Version 2)
Quarter: 2013Q2

REPORT INFORMATION
  Report Type: Spontaneous
  Country: US (occurrence: None)
  Receive Date: 20120508
  Receipt Date: 20120709
  Transmission Date: 20140414
  Serious: No
  Sender: FDA-Public Use
  Company Number: 2012HGS-003107

PATIENT
  Age: 62 Year
  Sex: Female
  Weight: 64.86 kg

DRUGS (7)
  1. BENLYSTA [Suspect]
     Indication: SYSTEMIC LUPUS ERYTHEMATOSUS
     Route: 041
  2. PREDNISONE (PREDNISONE) [Concomitant]
  3. HYDROXYCHLOROQUINE (HYDROXYCHLOROQINE) [Concomitant]
  4. LISINOPRIL [Concomitant]
  5. SYNTHROID (LEVOTHYROXINE SODIUM) [Concomitant]
  6. WARFARIN [Concomitant]
  7. NADOLOL (NADOLOL) [Concomitant]

REACTIONS (2)
  - Muscle spasms [None]
  - Sinusitis [None]
